FAERS Safety Report 6784498-X (Version None)
Quarter: 2010Q2

REPORT INFORMATION
  Report Type: 
  Country: None (occurrence: None)
  Receive Date: 20100622
  Receipt Date: 20100617
  Transmission Date: 20101027
  Serious: Yes (Death, Life-Threatening, Hospitalization)
  Sender: FDA-Public Use
  Company Number: BE-PFIZER INC-2010065952

PATIENT
  Age: 72 Year
  Sex: Male
  Weight: 87.9 kg

DRUGS (17)
  1. MEDROL [Suspect]
     Dosage: 16 MG, 1X/DAY
     Route: 048
     Dates: start: 20100301, end: 20100312
  2. ALLOPURINOL [Concomitant]
     Dosage: UNK
     Dates: start: 20050101
  3. GLICLAZIDE [Concomitant]
     Dosage: UNK
     Dates: start: 20040101
  4. ASAFLOW [Concomitant]
     Dosage: UNK
     Dates: start: 20090101
  5. DIOVANE [Concomitant]
     Dosage: UNK
     Dates: start: 19940101
  6. FLECAINIDE ACETATE [Concomitant]
     Dosage: UNK
     Dates: start: 20080402
  7. BISOPROLOL FUMARATE AND HYDROCHLOROTHIAZIDE [Concomitant]
     Dosage: UNK
     Dates: start: 20091118
  8. NEORECORMON ^BOEHRINGER MANNHEIM^ [Concomitant]
     Dosage: UNK
     Dates: start: 20100128, end: 20100305
  9. BIOFENAC ^UCB^ [Concomitant]
     Dosage: UNK
     Dates: start: 20100115
  10. DAFALGAN [Concomitant]
     Dosage: UNK
     Dates: start: 20100211
  11. LASIX [Concomitant]
     Dosage: UNK
     Dates: start: 20100201, end: 20100201
  12. MAGNESIUM [Concomitant]
     Dosage: UNK
     Dates: start: 20100211
  13. TETRAZEPAM [Concomitant]
     Dosage: UNK
     Dates: start: 20100212
  14. KAMOL [Concomitant]
     Dosage: UNK
     Dates: start: 20100212
  15. FLEXIUM [Concomitant]
     Dosage: UNK
     Dates: start: 20100212
  16. DICLOFENAC [Concomitant]
     Dosage: UNK
     Dates: start: 20100226, end: 20100303
  17. DESFERAL [Concomitant]
     Dosage: UNK
     Dates: start: 20100211, end: 20100305

REACTIONS (1)
  - RESPIRATORY TRACT INFECTION [None]
